FAERS Safety Report 9924055 (Version 1)
Quarter: 2014Q1

REPORT INFORMATION
  Report Type: Spontaneous
  Country: NO (occurrence: NO)
  Receive Date: 20140225
  Receipt Date: 20140225
  Transmission Date: 20141002
  Serious: Yes (Other)
  Sender: FDA-Public Use
  Company Number: NO-MYLANLABS-2014S1003261

PATIENT
  Sex: Female

DRUGS (3)
  1. BUSPIRONE [Suspect]
     Indication: DEPRESSION
     Dosage: 10 MG, TID
  2. BUSPIRONE [Suspect]
     Indication: DEPRESSION
     Dosage: 10 MG, BID
     Dates: start: 201307
  3. BUSPIRONE [Suspect]
     Indication: DEPRESSION
     Dosage: 10MG AM AND LUNCH AND 20 MG IN THE EVENING

REACTIONS (2)
  - Discomfort [Unknown]
  - Drug ineffective [Unknown]
